FAERS Safety Report 12299010 (Version 2)
Quarter: 2016Q2

REPORT INFORMATION
  Report Type: Spontaneous
  Country: FR (occurrence: FR)
  Receive Date: 20160425
  Receipt Date: 20160525
  Transmission Date: 20160815
  Serious: Yes (Death, Other)
  Sender: FDA-Public Use
  Company Number: FR-ROCHE-1744351

PATIENT
  Age: 64 Year
  Sex: Male
  Weight: 100 kg

DRUGS (5)
  1. DAFALGAN [Concomitant]
     Active Substance: ACETAMINOPHEN
     Indication: PAIN
     Dosage: AS REQUIRED
     Route: 065
  2. SPASFON (FRANCE) [Concomitant]
     Active Substance: PHLOROGLUCINOL
     Indication: PAIN
     Dosage: AS REQUIRED
     Route: 065
  3. LANSOYL [Concomitant]
     Active Substance: MINERAL OIL
     Indication: CONSTIPATION
     Dosage: AS REQUIRED
     Route: 065
  4. ROACTEMRA [Suspect]
     Active Substance: TOCILIZUMAB
     Indication: RHEUMATOID ARTHRITIS
     Dosage: SYRINGES 20 MG/ML
     Route: 042
     Dates: start: 20150828, end: 201602
  5. TOPALGIC (FRANCE) [Concomitant]
     Active Substance: TRAMADOL
     Indication: PAIN
     Dosage: AS REQUIRED
     Route: 065

REACTIONS (16)
  - Rash [Unknown]
  - Completed suicide [Fatal]
  - Aneurysm [Unknown]
  - Nausea [Unknown]
  - Headache [Unknown]
  - Fatigue [Unknown]
  - Flatulence [Unknown]
  - Blood cholesterol increased [Unknown]
  - Depression [Fatal]
  - Gastrointestinal disorder [Unknown]
  - Urinary tract obstruction [Unknown]
  - Peripheral coldness [Unknown]
  - Vomiting [Unknown]
  - Abdominal pain [Fatal]
  - Dizziness [Unknown]
  - Constipation [Unknown]

NARRATIVE: CASE EVENT DATE: 201601
